FAERS Safety Report 6887980-X (Version None)
Quarter: 2010Q3

REPORT INFORMATION
  Report Type: 
  Country: None (occurrence: None)
  Receive Date: 20100730
  Receipt Date: 20100720
  Transmission Date: 20110219
  Serious: Yes (Hospitalization)
  Sender: FDA-Public Use
  Company Number: A0867503A

PATIENT
  Age: 64 Year
  Sex: Female

DRUGS (16)
  1. AVANDIA [Suspect]
     Route: 048
  2. AVANDARYL [Suspect]
  3. AVANDAMET [Suspect]
  4. FERROUS SULFATE [Concomitant]
  5. METFORMIN HCL [Concomitant]
  6. FUROSEMIDE [Concomitant]
  7. ENALAPRIL [Concomitant]
  8. PLAVIX [Concomitant]
  9. ASPIRIN [Concomitant]
  10. LEVOXYL [Concomitant]
  11. ZOCOR [Concomitant]
  12. GLIMEPIRIDE [Concomitant]
  13. PREMARIN [Concomitant]
  14. METOPROLOL TARTRATE [Concomitant]
  15. MECLIZINE [Concomitant]
  16. ACETAMINOPHEN [Concomitant]

REACTIONS (4)
  - CARDIAC DISORDER [None]
  - CARDIAC FAILURE CONGESTIVE [None]
  - RENAL DISORDER [None]
  - RENAL FAILURE [None]
